FAERS Safety Report 8582673-5 (Version None)
Quarter: 2012Q3

REPORT INFORMATION
  Report Type: 
  Country: None (occurrence: None)
  Receive Date: 20120809
  Receipt Date: 20120807
  Transmission Date: 20120928
  Serious: No
  Sender: FDA-Public Use
  Company Number: US-PFIZER INC-2012157601

PATIENT
  Age: 49 Year
  Sex: Female
  Weight: 56.689 kg

DRUGS (3)
  1. CHANTIX [Suspect]
     Dosage: 1 MG, UNK
     Route: 048
     Dates: start: 20120601
  2. CHANTIX [Suspect]
     Indication: SMOKING CESSATION THERAPY
     Dosage: 0.5 MG, 1/XDAY
     Route: 048
     Dates: start: 20120613, end: 20120601
  3. PROAIR HFA [Concomitant]
     Indication: DYSPNOEA
     Dosage: UNK, 3X/DAY
     Dates: start: 20120101

REACTIONS (2)
  - MYALGIA [None]
  - NAUSEA [None]
